FAERS Safety Report 9765543 (Version 1)
Quarter: 2013Q4

REPORT INFORMATION
  Report Type: Spontaneous
  Country: US (occurrence: US)
  Receive Date: 20131217
  Receipt Date: 20131217
  Transmission Date: 20140711
  Serious: No
  Sender: FDA-Public Use
  Company Number: US-BIOGENIDEC-2013BI112883

PATIENT
  Age: 51 Year
  Sex: Male

DRUGS (3)
  1. TECFIDERA [Suspect]
     Indication: MULTIPLE SCLEROSIS
     Route: 048
     Dates: start: 20131104, end: 20131110
  2. TECFIDERA [Suspect]
     Indication: MULTIPLE SCLEROSIS
     Route: 048
     Dates: start: 20131111
  3. LATANOPROST EYE DROPS [Concomitant]
     Indication: BORDERLINE GLAUCOMA

REACTIONS (3)
  - Frequent bowel movements [Not Recovered/Not Resolved]
  - Photophobia [Not Recovered/Not Resolved]
  - Flushing [Recovered/Resolved]
